FAERS Safety Report 5853731-0 (Version None)
Quarter: 2008Q3

REPORT INFORMATION
  Report Type: 
  Country: None (occurrence: None)
  Receive Date: 20080822
  Receipt Date: 20080814
  Transmission Date: 20090109
  Serious: Yes (Hospitalization, Disabling)
  Sender: FDA-Public Use
  Company Number: GB-AMGEN-US299417

PATIENT
  Sex: Female
  Weight: 28 kg

DRUGS (5)
  1. ENBREL [Suspect]
     Indication: JUVENILE ARTHRITIS
     Route: 058
     Dates: start: 20080101
  2. METHOTREXATE SODIUM [Suspect]
     Dosage: UNKNOWN
     Dates: end: 20071201
  3. PIROXICAM [Concomitant]
     Dosage: 10 MG AS REQUIRED
     Route: 048
     Dates: start: 20080205
  4. FELDENE [Concomitant]
     Indication: ARTHRITIS
     Dosage: 10 MG FREQUENCY UNKNOWN
     Route: 048
     Dates: end: 20080401
  5. PREDNISOLONE [Concomitant]
     Indication: JUVENILE ARTHRITIS
     Dosage: 5 MG FREQUENCY UNKNOWN
     Route: 048
     Dates: end: 20080401

REACTIONS (3)
  - ALANINE AMINOTRANSFERASE INCREASED [None]
  - DISEASE PROGRESSION [None]
  - HEPATIC ENZYME INCREASED [None]
